FAERS Safety Report 24769897 (Version 1)
Quarter: 2024Q4

REPORT INFORMATION
  Report Type: Spontaneous
  Country: US (occurrence: US)
  Receive Date: 20241224
  Receipt Date: 20241224
  Transmission Date: 20250114
  Serious: No
  Sender: TEVA
  Company Number: US-TEVA-VS-3272588

PATIENT
  Age: 70 Year
  Sex: Female

DRUGS (1)
  1. AJOVY [Suspect]
     Active Substance: FREMANEZUMAB-VFRM
     Indication: Migraine
     Dosage: STRENGTH: 225/1.5MG/ML, POSSIBLY A MONTH AGO STARTED
     Route: 065
     Dates: start: 2024

REACTIONS (2)
  - COVID-19 [Unknown]
  - Product use issue [Unknown]

NARRATIVE: CASE EVENT DATE: 20240101
